FAERS Safety Report 6701684-5 (Version None)
Quarter: 2010Q2

REPORT INFORMATION
  Report Type: 
  Country: None (occurrence: None)
  Receive Date: 20100429
  Receipt Date: 20100419
  Transmission Date: 20101027
  Serious: Yes (Hospitalization, Disabling, Other)
  Sender: FDA-Public Use
  Company Number: PHHY2010AU15703

PATIENT
  Sex: Male
  Weight: 68.8 kg

DRUGS (3)
  1. CLOZARIL [Suspect]
     Indication: SCHIZOPHRENIA
     Dosage: 375 MG, UNK
     Route: 048
     Dates: start: 20050718
  2. CLOZARIL [Suspect]
     Dosage: 50 TABLETS (5000 MG)/70 TABLETS (7000MG)
     Route: 048
  3. CLOZARIL [Suspect]
     Dosage: UNK

REACTIONS (9)
  - ALANINE AMINOTRANSFERASE INCREASED [None]
  - ARTHRALGIA [None]
  - BLOOD CREATININE INCREASED [None]
  - FALL [None]
  - MENTAL DISORDER [None]
  - MUSCULAR WEAKNESS [None]
  - NEUTROPHIL COUNT INCREASED [None]
  - OVERDOSE [None]
  - WHITE BLOOD CELL COUNT INCREASED [None]
